FAERS Safety Report 7650277-4 (Version None)
Quarter: 2011Q3

REPORT INFORMATION
  Report Type: 
  Country: None (occurrence: None)
  Receive Date: 20110727
  Receipt Date: 20110711
  Transmission Date: 20111222
  Serious: Yes (Hospitalization, Other)
  Sender: FDA-Public Use
  Company Number: M1103165

PATIENT
  Age: 75 Year
  Sex: Female
  Weight: 126 kg

DRUGS (6)
  1. PRADAXA [Suspect]
     Indication: ATRIAL FIBRILLATION
     Dosage: ORAL
     Route: 048
     Dates: start: 20091201, end: 20110501
  2. WARFARIN SODIUM [Suspect]
     Dosage: ORAL
     Route: 048
     Dates: start: 20110601
  3. SOTALOL TABLET(SOTALOL) [Suspect]
     Dosage: ORAL
     Route: 048
  4. AMIODARONE HCL [Suspect]
     Indication: ATRIAL FIBRILLATION
     Dosage: 2 IN 1 D, ORAL, 2 IN 1 D
     Route: 048
     Dates: end: 20110501
  5. AMIODARONE HCL [Suspect]
     Indication: ATRIAL FIBRILLATION
     Dosage: 2 IN 1 D, ORAL, 2 IN 1 D
     Route: 048
     Dates: start: 20091201
  6. DRONEDARONE HCL [Suspect]

REACTIONS (9)
  - HIP FRACTURE [None]
  - BLADDER DISORDER [None]
  - LARGE INTESTINAL HAEMORRHAGE [None]
  - DRUG INTOLERANCE [None]
  - DYSPNOEA [None]
  - PULMONARY TOXICITY [None]
  - NAUSEA [None]
  - ATRIAL FIBRILLATION [None]
  - PAIN [None]
